FAERS Safety Report 4989531-3 (Version None)
Quarter: 2006Q2

REPORT INFORMATION
  Report Type: 
  Country: None (occurrence: None)
  Receive Date: 20060502
  Receipt Date: 20050207
  Transmission Date: 20061013
  Serious: Yes (Hospitalization)
  Sender: FDA-Public Use
  Company Number: US-MERCK-0502USA00910

PATIENT
  Age: 56 Year
  Sex: Female
  Weight: 98 kg

DRUGS (2)
  1. VIOXX [Suspect]
     Indication: ARTHRALGIA
     Route: 048
     Dates: start: 19990629, end: 20040913
  2. IBUPROFEN [Concomitant]
     Route: 065

REACTIONS (23)
  - ARTHROPATHY [None]
  - BLADDER DISORDER [None]
  - CHRONIC OBSTRUCTIVE PULMONARY DISEASE [None]
  - DEEP VEIN THROMBOSIS [None]
  - DEPRESSION [None]
  - ENDOMETRIOSIS [None]
  - FIBROMYALGIA [None]
  - GALLBLADDER DISORDER [None]
  - GASTROOESOPHAGEAL REFLUX DISEASE [None]
  - HEADACHE [None]
  - HYPERTENSION [None]
  - HYPOTHYROIDISM [None]
  - INTESTINAL FUNCTIONAL DISORDER [None]
  - MENISCUS LESION [None]
  - NAUSEA [None]
  - OEDEMA PERIPHERAL [None]
  - OSTEOARTHRITIS [None]
  - OSTEOPENIA [None]
  - PHLEBITIS SUPERFICIAL [None]
  - PULMONARY EMBOLISM [None]
  - SINUSITIS [None]
  - SKIN ULCER [None]
  - WOUND [None]
